FAERS Safety Report 22628867 (Version 2)
Quarter: 2023Q2

REPORT INFORMATION
  Report Type: Spontaneous
  Country: CO (occurrence: CO)
  Receive Date: 20230622
  Receipt Date: 20230628
  Transmission Date: 20230721
  Serious: No
  Sender: FDA-Public Use
  Company Number: CO-PFIZER INC-PV202300106682

PATIENT
  Age: 11 Year
  Sex: Female

DRUGS (2)
  1. GENOTROPIN [Suspect]
     Active Substance: SOMATROPIN
     Dosage: 1 MG, DAILY
     Route: 058
     Dates: start: 2022
  2. GENOTROPIN [Suspect]
     Active Substance: SOMATROPIN
     Dosage: 1.2 MG
     Route: 058

REACTIONS (6)
  - Injection site swelling [Unknown]
  - Papule [Unknown]
  - Incorrect dose administered by device [Unknown]
  - Device leakage [Unknown]
  - Device defective [Unknown]
  - Device issue [Unknown]

NARRATIVE: CASE EVENT DATE: 20230501
